FAERS Safety Report 4381659-4 (Version None)
Quarter: 2004Q2

REPORT INFORMATION
  Report Type: 
  Country: None (occurrence: None)
  Receive Date: 20040615
  Receipt Date: 20040609
  Transmission Date: 20050107
  Serious: No
  Sender: FDA-Public Use
  Company Number: 2004UW11990

PATIENT
  Age: 61 Year
  Sex: Male
  Weight: 83.9154 kg

DRUGS (4)
  1. DIPRIVAN [Suspect]
     Dosage: 1 % IV
     Route: 042
  2. METHYLPREDNISOLONE [Suspect]
  3. LIDOCAINE [Concomitant]
  4. SALINE SOLUTION [Concomitant]

REACTIONS (2)
  - ARTERIAL THROMBOSIS [None]
  - PAIN IN EXTREMITY [None]
